FAERS Safety Report 9290533 (Version 2)
Quarter: 2013Q3

REPORT INFORMATION
  Report Type: Spontaneous
  Country: IT (occurrence: IT)
  Receive Date: 20130515
  Receipt Date: 20130706
  Transmission Date: 20140515
  Serious: Yes (Hospitalization)
  Sender: FDA-Public Use
  Company Number: IT-ABBOTT-13X-083-1089042-00

PATIENT
  Age: 79 Year
  Sex: Female

DRUGS (2)
  1. DEPAKINE CHRONO [Suspect]
     Indication: HEADACHE
     Dosage: 300 MILLIGRAM(S); TABLET, EXTENDED RELEASE
     Route: 048
     Dates: start: 20130412, end: 20130412
  2. RYTMONORM [Concomitant]
     Indication: PRODUCT USED FOR UNKNOWN INDICATION

REACTIONS (2)
  - Tachycardia [Recovered/Resolved]
  - Anxiety [Recovered/Resolved]
